FAERS Safety Report 23725252 (Version 1)
Quarter: 2024Q2

REPORT INFORMATION
  Report Type: Spontaneous
  Country: KR (occurrence: KR)
  Receive Date: 20240410
  Receipt Date: 20240410
  Transmission Date: 20240716
  Serious: Yes (Death, Other)
  Sender: FDA-Public Use
  Company Number: KR-AMGEN-KORSP2024068586

PATIENT

DRUGS (3)
  1. PROLIA [Suspect]
     Active Substance: DENOSUMAB
     Indication: Osteoporosis postmenopausal
     Dosage: 60 MILLIGRAM
     Route: 058
  2. CALCIUM [Concomitant]
     Active Substance: CALCIUM
     Indication: Osteoporosis postmenopausal
     Dosage: UNK, MORE THAN 1000 MILLIGRAM
     Route: 048
  3. VITAMIN D [Concomitant]
     Active Substance: VITAMIN D NOS
     Indication: Osteoporosis postmenopausal
     Dosage: UNK UNK, QD, 400 INTEMATIONAL UNITS (IU) DAILY
     Route: 065

REACTIONS (23)
  - Subdural haemorrhage [Fatal]
  - Appendicitis perforated [Unknown]
  - Diabetes mellitus inadequate control [Unknown]
  - Intervertebral disc protrusion [Unknown]
  - Bronchitis [Unknown]
  - Tendon rupture [Unknown]
  - Haemorrhoids [Unknown]
  - Macular hole [Unknown]
  - Fall [Unknown]
  - Spinal compression fracture [Unknown]
  - Colorectal adenoma [Unknown]
  - Constipation [Unknown]
  - Ligament sprain [Unknown]
  - Nausea [Unknown]
  - Myalgia [Unknown]
  - Nasopharyngitis [Unknown]
  - Arthralgia [Unknown]
  - Headache [Unknown]
  - Dyspepsia [Unknown]
  - Gastritis [Unknown]
  - Blood bilirubin increased [Unknown]
  - Foot fracture [Recovered/Resolved]
  - Hypercalcaemia [Unknown]
